FAERS Safety Report 7954374-5 (Version None)
Quarter: 2011Q4

REPORT INFORMATION
  Report Type: 
  Country: None (occurrence: None)
  Receive Date: 20111202
  Receipt Date: 20111118
  Transmission Date: 20120403
  Serious: Yes (Other)
  Sender: FDA-Public Use
  Company Number: DE-PFIZER INC-2011294012

PATIENT
  Age: 31 Year
  Sex: Female
  Weight: 77 kg

DRUGS (5)
  1. SERTRALINE HYDROCHLORIDE [Suspect]
     Indication: DEPRESSION
     Dosage: 75 MG, DAILY DOSE
     Dates: start: 20101220, end: 20110118
  2. FOLIC ACID [Concomitant]
     Indication: PROPHYLAXIS OF NEURAL TUBE DEFECT
     Dosage: 0.8 MG, UNK
     Dates: start: 20101104
  3. LORAZEPAM [Concomitant]
     Dosage: 0.5 MG, 1X/DAY
     Dates: start: 20101220, end: 20110126
  4. VOMEX A [Concomitant]
     Indication: VOMITING IN PREGNANCY
     Dosage: UNK
     Dates: end: 20110303
  5. SERTRALINE HYDROCHLORIDE [Suspect]
     Dosage: 100 MG, DAILY DOSE
     Dates: start: 20110119, end: 20110802

REACTIONS (2)
  - CAESAREAN SECTION [None]
  - MATERNAL EXPOSURE DURING PREGNANCY [None]
